FAERS Safety Report 8161215-2 (Version None)
Quarter: 2012Q1

REPORT INFORMATION
  Report Type: 
  Country: None (occurrence: None)
  Receive Date: 20120103
  Receipt Date: 20111024
  Transmission Date: 20120608
  Serious: No
  Sender: FDA-Public Use
  Company Number: AE-2011-002088

PATIENT
  Sex: Male

DRUGS (3)
  1. PEGASYS [Concomitant]
  2. INCIVEK [Suspect]
     Dosage: ORAL
     Route: 048
  3. RIBAVIRIN [Concomitant]

REACTIONS (2)
  - PARAESTHESIA [None]
  - HYPOAESTHESIA [None]
